FAERS Safety Report 5232051-1 (Version None)
Quarter: 2007Q1

REPORT INFORMATION
  Report Type: 
  Country: None (occurrence: None)
  Receive Date: 20061201
  Receipt Date: 20060912
  Transmission Date: 20070707
  Serious: No
  Sender: FDA-Public Use
  Company Number: US200608005820

PATIENT
  Age: 65 Year
  Sex: Female

DRUGS (5)
  1. CYMBALTA [Suspect]
     Indication: FIBROMYALGIA
     Dosage: SEE IMAGE
     Dates: start: 20040101
  2. DIOVAN [Concomitant]
  3. SYNTHROID [Concomitant]
  4. ASPIRIN [Concomitant]
  5. PRILOSEC [Concomitant]

REACTIONS (2)
  - DRUG EFFECT DECREASED [None]
  - PANIC REACTION [None]
